FAERS Safety Report 21085176 (Version 1)
Quarter: 2022Q3

REPORT INFORMATION
  Report Type: Spontaneous
  Country: US (occurrence: MX)
  Receive Date: 20220714
  Receipt Date: 20220714
  Transmission Date: 20221027
  Serious: Yes (Other)
  Sender: FDA-Public Use
  Company Number: US-ORGANON-O2207USA000730

PATIENT
  Sex: Female
  Weight: 58.594 kg

DRUGS (3)
  1. ETONOGESTREL [Suspect]
     Active Substance: ETONOGESTREL
     Indication: Contraception
     Dosage: 1 IMPLANT LEFT ARM
     Dates: start: 2014
  2. ERGOCALCIFEROL [Concomitant]
     Active Substance: ERGOCALCIFEROL
     Dosage: 1 CAPSULE 5000 UT
     Route: 048
  3. FLUCONAZOLE [Concomitant]
     Active Substance: FLUCONAZOLE
     Dosage: 1 DOSAGE FORM, QD
     Route: 048

REACTIONS (9)
  - Type 2 diabetes mellitus [Unknown]
  - Type V hyperlipidaemia [Unknown]
  - Menstruation irregular [Unknown]
  - Blood alkaline phosphatase increased [Unknown]
  - Vulvovaginal candidiasis [Unknown]
  - Device deployment issue [Not Recovered/Not Resolved]
  - Device issue [Not Recovered/Not Resolved]
  - Complication associated with device [Recovered/Resolved]
  - Incorrect product administration duration [Unknown]

NARRATIVE: CASE EVENT DATE: 20140101
